FAERS Safety Report 19956367 (Version 1)
Quarter: 2021Q4

REPORT INFORMATION
  Report Type: Spontaneous
  Country: CN (occurrence: CN)
  Receive Date: 20211014
  Receipt Date: 20211014
  Transmission Date: 20220303
  Serious: Yes (Hospitalization)
  Sender: FDA-Public Use
  Company Number: CN-FRESENIUS KABI-FK202110883

PATIENT
  Age: 83 Year
  Sex: Male

DRUGS (3)
  1. INTRALIPID [Suspect]
     Active Substance: EGG PHOSPHOLIPIDS\GLYCERIN\SOYBEAN OIL
     Indication: Nutritional supplementation
     Dosage: THE DOSAGE FORM WAS REPORTED AS INJECTION IN THE SOURCE
     Route: 041
     Dates: start: 20210421, end: 20210425
  2. OMEPRAZOLE SODIUM [Concomitant]
     Active Substance: OMEPRAZOLE SODIUM
     Indication: Prophylaxis
     Route: 041
     Dates: start: 20210422, end: 20210429
  3. ACETYLCYSTEINE [Concomitant]
     Active Substance: ACETYLCYSTEINE
     Indication: Sputum abnormal
     Route: 055
     Dates: start: 20210422, end: 20210429

REACTIONS (2)
  - Delirium [Recovered/Resolved]
  - Aggression [Recovered/Resolved]

NARRATIVE: CASE EVENT DATE: 20210423
